FAERS Safety Report 23177098 (Version 5)
Quarter: 2025Q1

REPORT INFORMATION
  Report Type: Spontaneous
  Country: US (occurrence: US)
  Receive Date: 20231113
  Receipt Date: 20250102
  Transmission Date: 20250409
  Serious: Yes (Other)
  Sender: SANOFI AVENTIS
  Company Number: US-SA-SAC20231102000788

PATIENT
  Age: 69 Year
  Sex: Male

DRUGS (2)
  1. DUPIXENT [Suspect]
     Active Substance: DUPILUMAB
     Indication: Asthma
     Route: 058
     Dates: start: 20231014, end: 20231014
  2. DUPIXENT [Suspect]
     Active Substance: DUPILUMAB
     Dosage: 300 MG, QOW
     Route: 058
     Dates: start: 20231028

REACTIONS (13)
  - Diabetes mellitus [Unknown]
  - Arthritis [Not Recovered/Not Resolved]
  - Influenza [Recovered/Resolved]
  - Respiratory symptom [Unknown]
  - Nasal disorder [Unknown]
  - Productive cough [Unknown]
  - Skin discolouration [Recovered/Resolved]
  - Procedural haemorrhage [Recovered/Resolved]
  - Impaired healing [Not Recovered/Not Resolved]
  - Hypokinesia [Recovered/Resolved]
  - Blood pressure abnormal [Unknown]
  - Back pain [Unknown]
  - Micrographic skin surgery [Unknown]

NARRATIVE: CASE EVENT DATE: 20231001
